FAERS Safety Report 8816035 (Version 3)
Quarter: 2013Q1

REPORT INFORMATION
  Report Type: Spontaneous
  Country: US (occurrence: US)
  Receive Date: 20120928
  Receipt Date: 20130104
  Transmission Date: 20140127
  Serious: Yes (Other)
  Sender: FDA-Public Use
  Company Number: US-BAYER-2012-099883

PATIENT
  Sex: Female

DRUGS (1)
  1. MIRENA [Suspect]
     Indication: CONTRACEPTION
     Dosage: 20 MCG/24HR, CONT
     Route: 015
     Dates: start: 201206, end: 201207

REACTIONS (5)
  - Post procedural haemorrhage [Recovering/Resolving]
  - Genital haemorrhage [Recovering/Resolving]
  - Loss of consciousness [None]
  - Abdominal pain [Recovering/Resolving]
  - Device expulsion [Recovered/Resolved]
